FAERS Safety Report 12742248 (Version 1)
Quarter: 2016Q3

REPORT INFORMATION
  Report Type: Spontaneous
  Country: US (occurrence: US)
  Receive Date: 20160913
  Receipt Date: 20160913
  Transmission Date: 20161109
  Serious: Yes (Disabling)
  Sender: FDA-Public Use
  Company Number: None

PATIENT
  Age: 56 Year
  Sex: Male
  Weight: 83.92 kg

DRUGS (34)
  1. FLUTICASONE PROPIONATE. [Concomitant]
     Active Substance: FLUTICASONE PROPIONATE
  2. RESTASIS [Concomitant]
     Active Substance: CYCLOSPORINE
  3. CELEBREX [Concomitant]
     Active Substance: CELECOXIB
  4. COSAMIN DS [Concomitant]
  5. DESLORATADINE. [Concomitant]
     Active Substance: DESLORATADINE
  6. DOXYCYCLINE. [Concomitant]
     Active Substance: DOXYCYCLINE
  7. LOCOID [Concomitant]
     Active Substance: HYDROCORTISONE BUTYRATE
  8. SCULPTRA [Concomitant]
     Active Substance: POLYLACTIDE, L-
  9. NEILMED [Concomitant]
  10. MUCINEX [Concomitant]
     Active Substance: GUAIFENESIN
  11. L-GLUTAMINE /00503401/ [Concomitant]
     Active Substance: GLUTAMINE
  12. PHOSPHA 250 NEUTRAL [Concomitant]
     Active Substance: POTASSIUM PHOSPHATE, MONOBASIC\SODIUM PHOSPHATE, DIBASIC, ANHYDROUS\SODIUM PHOSPHATE, MONOBASIC, MONOHYDRATE
  13. MINOXIDIL. [Concomitant]
     Active Substance: MINOXIDIL
  14. TRUVADA [Suspect]
     Active Substance: EMTRICITABINE\TENOFOVIR DISOPROXIL FUMARATE
     Indication: HIV INFECTION
     Dosage: STRENGTH - FIXED DOSE (COMBINATION
     Route: 048
     Dates: start: 20050325
  15. TRUVADA [Concomitant]
     Active Substance: EMTRICITABINE\TENOFOVIR DISOPROXIL FUMARATE
  16. PATADAY [Concomitant]
     Active Substance: OLOPATADINE HYDROCHLORIDE
  17. DIOVAN [Concomitant]
     Active Substance: VALSARTAN
  18. OXYCODONE [Concomitant]
     Active Substance: OXYCODONE
  19. CIPRO [Concomitant]
     Active Substance: CIPROFLOXACIN HYDROCHLORIDE
  20. THERATEARS [Concomitant]
     Active Substance: CARBOXYMETHYLCELLULOSE SODIUM
  21. OMEGA-3 ACIDS [Concomitant]
     Active Substance: OMEGA-3 FATTY ACIDS
  22. BIOTIN [Concomitant]
     Active Substance: BIOTIN
  23. COLACE [Concomitant]
     Active Substance: DOCUSATE SODIUM
  24. ADVATE [Concomitant]
     Active Substance: ANTIHEMOPHILIC FACTOR, HUMAN RECOMBINANT
  25. TIVICAY [Concomitant]
     Active Substance: DOLUTEGRAVIR SODIUM
  26. CIALIS [Concomitant]
     Active Substance: TADALAFIL
  27. MULTIVITAMIN [Concomitant]
     Active Substance: VITAMINS
  28. AMICAR [Concomitant]
     Active Substance: AMINOCAPROIC ACID
  29. DEPO-TESTOSTERONE [Concomitant]
     Active Substance: TESTOSTERONE CYPIONATE
  30. ZOLPIDEM [Concomitant]
     Active Substance: ZOLPIDEM\ZOLPIDEM TARTRATE
  31. EPIPEN [Concomitant]
     Active Substance: EPINEPHRINE
  32. AYR SALINE NASAL DROPS [Concomitant]
     Active Substance: SODIUM CHLORIDE
  33. SUDAFED [Concomitant]
     Active Substance: PSEUDOEPHEDRINE HYDROCHLORIDE
  34. RETAINE MGD [Concomitant]
     Active Substance: LIGHT MINERAL OIL\MINERAL OIL

REACTIONS (1)
  - Blood phosphorus increased [None]

NARRATIVE: CASE EVENT DATE: 20081001
